FAERS Safety Report 9993165 (Version 1)
Quarter: 2014Q1

REPORT INFORMATION
  Report Type: Report from Study
  Country: US (occurrence: US)
  Receive Date: 20140310
  Receipt Date: 20140310
  Transmission Date: 20141002
  Serious: No
  Sender: FDA-Public Use
  Company Number: US-ABBVIE-13P-163-1086299-00

PATIENT
  Age: 31 Year
  Sex: Female

DRUGS (7)
  1. LUPRON DEPOT [Suspect]
     Indication: ENDOMETRIOSIS
     Dates: start: 20130503
  2. NORETHINDRONE ACETATE [Suspect]
     Indication: PRODUCT USED FOR UNKNOWN INDICATION
     Route: 048
     Dates: start: 20130503
  3. IRON [Concomitant]
     Indication: PRODUCT USED FOR UNKNOWN INDICATION
     Dosage: DAILY
  4. VITAMIN D [Concomitant]
     Indication: PRODUCT USED FOR UNKNOWN INDICATION
     Dosage: DAILY
  5. TRAMADOL [Concomitant]
     Indication: PAIN
     Dosage: 50-100MG
  6. PERCOCET [Concomitant]
     Indication: PAIN
  7. IBUPROFEN [Concomitant]
     Indication: PAIN

REACTIONS (6)
  - Chest pain [Not Recovered/Not Resolved]
  - Feeling jittery [Not Recovered/Not Resolved]
  - Depression [Not Recovered/Not Resolved]
  - Menstrual disorder [Not Recovered/Not Resolved]
  - Crying [Not Recovered/Not Resolved]
  - Dyspnoea [Not Recovered/Not Resolved]
